FAERS Safety Report 7997642-3 (Version None)
Quarter: 2011Q4

REPORT INFORMATION
  Report Type: 
  Country: None (occurrence: None)
  Receive Date: 20111221
  Receipt Date: 20111213
  Transmission Date: 20120403
  Serious: Yes (Other)
  Sender: FDA-Public Use
  Company Number: IT-JNJFOC-20111206707

PATIENT
  Sex: Male

DRUGS (3)
  1. HALDOL [Suspect]
     Route: 030
  2. HALDOL [Suspect]
     Route: 030
     Dates: start: 20010101
  3. HALDOL [Suspect]
     Indication: PRODUCT USED FOR UNKNOWN INDICATION
     Route: 030
     Dates: end: 20100101

REACTIONS (2)
  - ANGINA PECTORIS [None]
  - SOMNOLENCE [None]
